FAERS Safety Report 10942407 (Version 1)
Quarter: 2015Q1

REPORT INFORMATION
  Report Type: Spontaneous
  Country: US (occurrence: None)
  Receive Date: 20150212
  Receipt Date: 20150212
  Transmission Date: 20150721
  Serious: No
  Sender: FDA-Public Use
  Company Number: TPA2011A03151

PATIENT
  Age: 62 Year
  Sex: Female
  Weight: 99.79 kg

DRUGS (5)
  1. ASPIRIN (ACETYLSALICYLIC ACID) [Concomitant]
     Active Substance: ASPIRIN
  2. VITAMIN C [Concomitant]
     Active Substance: ASCORBIC ACID
  3. CRANBERRY (VACCINIUM MACROCARPON) [Concomitant]
  4. ULORIC [Suspect]
     Active Substance: FEBUXOSTAT
     Indication: BLOOD URIC ACID INCREASED
     Route: 048
     Dates: start: 201104, end: 20110608
  5. SINGULAR (MONTELUKAST SODIUM) [Concomitant]

REACTIONS (3)
  - Urinary tract infection [None]
  - Dysuria [None]
  - Pollakiuria [None]
